FAERS Safety Report 4417490-0 (Version None)
Quarter: 2004Q2

REPORT INFORMATION
  Report Type: 
  Country: None (occurrence: None)
  Receive Date: 20040625
  Receipt Date: 20040416
  Transmission Date: 20050107
  Serious: No
  Sender: FDA-Public Use
  Company Number: 205934

PATIENT
  Age: 62 Year
  Sex: Male

DRUGS (7)
  1. AVASTIN [Suspect]
     Indication: COLORECTAL CANCER
     Dosage: Q2W, INTRAVENOUS
     Route: 042
     Dates: start: 20040407
  2. COUMADIN [Concomitant]
  3. SELENIUM (SELENIUM) [Concomitant]
  4. MULTIPURPOSE VITAMIN (MULTIVITAMINS NOS) [Concomitant]
  5. ALLEGRA [Concomitant]
  6. ZOFRAN [Concomitant]
  7. LEUPROLIDE ACETATE (LEUPROLIDE ACETATE) [Concomitant]

REACTIONS (1)
  - LOOSE STOOLS [None]
